FAERS Safety Report 6810934-6 (Version None)
Quarter: 2010Q2

REPORT INFORMATION
  Report Type: 
  Country: None (occurrence: None)
  Receive Date: 20100630
  Receipt Date: 20080708
  Transmission Date: 20101027
  Serious: No
  Sender: FDA-Public Use
  Company Number: US-PFIZER INC-2008057553

PATIENT
  Sex: Female
  Weight: 72.727 kg

DRUGS (2)
  1. ESTRING [Suspect]
     Indication: OESTROGEN REPLACEMENT THERAPY
     Dosage: 1 UNIT
     Route: 067
     Dates: start: 20080617, end: 20080701
  2. ESTRING [Suspect]
     Indication: ATROPHIC VULVOVAGINITIS

REACTIONS (1)
  - DEVICE EXPULSION [None]
